FAERS Safety Report 15700892 (Version 1)
Quarter: 2018Q4

REPORT INFORMATION
  Report Type: Spontaneous
  Country: US (occurrence: US)
  Receive Date: 20181207
  Receipt Date: 20181207
  Transmission Date: 20190205
  Serious: No
  Sender: FDA-Public Use
  Company Number: US-JUBILANT CADISTA PHARMACEUTICALS-2018JUB00171

PATIENT
  Sex: Female
  Weight: 47.17 kg

DRUGS (4)
  1. METHYLPREDNISOLONE. [Suspect]
     Active Substance: METHYLPREDNISOLONE
     Indication: PLICA SYNDROME
     Dosage: UNK UNK, AS DIRECTED
     Route: 048
     Dates: start: 201802, end: 201802
  2. VITAMINS [Concomitant]
     Active Substance: VITAMINS
  3. UNSPECIFIED LUBRICANT [Concomitant]
     Dosage: UNK, 1X/DAY AT BEDTIME
     Route: 067
  4. SYNTHROID [Concomitant]
     Active Substance: LEVOTHYROXINE SODIUM

REACTIONS (10)
  - Vulvovaginal burning sensation [Not Recovered/Not Resolved]
  - Flushing [Recovered/Resolved]
  - Faecal volume increased [Recovered/Resolved]
  - Vulvovaginal mycotic infection [Recovered/Resolved]
  - Frequent bowel movements [Recovered/Resolved]
  - Vulvovaginal discomfort [Not Recovered/Not Resolved]
  - Dry skin [Recovered/Resolved]
  - Vulvovaginal dryness [Not Recovered/Not Resolved]
  - Abdominal distension [Recovered/Resolved]
  - Pollakiuria [Recovered/Resolved]

NARRATIVE: CASE EVENT DATE: 2018
